FAERS Safety Report 22267555 (Version 1)
Quarter: 2023Q2

REPORT INFORMATION
  Report Type: Spontaneous
  Country: FR (occurrence: FR)
  Receive Date: 20230430
  Receipt Date: 20230430
  Transmission Date: 20230722
  Serious: Yes (Hospitalization)
  Sender: FDA-Public Use
  Company Number: FR-AFSSAPS-PB2023000410

PATIENT
  Age: 34 Year
  Sex: Female

DRUGS (5)
  1. DIAZEPAM [Suspect]
     Active Substance: DIAZEPAM
     Indication: Product used for unknown indication
     Dosage: 10 CP DE 10 MG
     Route: 048
     Dates: start: 20230325
  2. QUETIAPINE [Suspect]
     Active Substance: QUETIAPINE
     Indication: Product used for unknown indication
     Dosage: 10 CP DE 300 MG
     Route: 048
     Dates: start: 20230324
  3. ZOPICLONE [Suspect]
     Active Substance: ZOPICLONE
     Indication: Product used for unknown indication
     Dosage: 12 CP DE 7.5 MG
     Route: 048
     Dates: start: 20230324
  4. FLURBIPROFEN [Suspect]
     Active Substance: FLURBIPROFEN
     Indication: Product used for unknown indication
     Dosage: 2 CP DE 100 MG
     Route: 048
     Dates: start: 20230325
  5. IBUPROFEN [Suspect]
     Active Substance: IBUPROFEN
     Indication: Product used for unknown indication
     Dosage: 9 CP DE 400 MG
     Route: 048
     Dates: start: 20230324

REACTIONS (2)
  - Somnolence [Unknown]
  - Toxicity to various agents [Recovered/Resolved]

NARRATIVE: CASE EVENT DATE: 20230325
